FAERS Safety Report 7501267-3 (Version None)
Quarter: 2011Q2

REPORT INFORMATION
  Report Type: 
  Country: None (occurrence: None)
  Receive Date: 20110524
  Receipt Date: 20110513
  Transmission Date: 20111010
  Serious: Yes (Hospitalization, Other)
  Sender: FDA-Public Use
  Company Number: US-ELI_LILLY_AND_COMPANY-US201105004462

PATIENT
  Sex: Female

DRUGS (5)
  1. LANTUS [Concomitant]
     Dosage: UNK
  2. SODIUM BICARBONATE [Concomitant]
     Dosage: UNK UNK, QD
  3. HUMALOG [Suspect]
     Indication: DIABETES MELLITUS
     Dosage: 45 U, TID
     Dates: start: 19950101
  4. SODIUM CHLORIDE [Concomitant]
     Dosage: UNK UNK, QD
  5. PROCRIT [Concomitant]
     Dosage: UNK, MONTHLY (1/M)

REACTIONS (4)
  - ACIDOSIS [None]
  - HAEMOGLOBIN DECREASED [None]
  - BLADDER CANCER [None]
  - RENAL IMPAIRMENT [None]
